FAERS Safety Report 20618625 (Version 2)
Quarter: 2022Q2

REPORT INFORMATION
  Report Type: Spontaneous
  Country: IT (occurrence: IT)
  Receive Date: 20220322
  Receipt Date: 20220622
  Transmission Date: 20220721
  Serious: No
  Sender: FDA-Public Use
  Company Number: IT-TEVA-2022-IT-2020130

PATIENT
  Age: 76 Year
  Sex: Female

DRUGS (10)
  1. PANTOPRAZOLE SODIUM [Suspect]
     Active Substance: PANTOPRAZOLE SODIUM
     Indication: Product used for unknown indication
     Route: 065
  2. LAMICTAL [Suspect]
     Active Substance: LAMOTRIGINE
     Indication: Epilepsy
     Dosage: LAMOTRIGINE 200, 250 UNTIL JANUARY
     Route: 065
  3. RAMIPRIL [Concomitant]
     Active Substance: RAMIPRIL
     Indication: Product used for unknown indication
     Dosage: 1 DOSAGE FORMS DAILY; RAMIPRIL 2.5 MG/HYDROCHLOROTIAZIDE 12.5
  4. RAMIPRIL [Concomitant]
     Active Substance: RAMIPRIL
     Dosage: HALF TABLET DAILY
  5. LAMICTAL [Concomitant]
     Active Substance: LAMOTRIGINE
     Indication: Product used for unknown indication
     Dosage: LAMOTRIGINE 200, 250 UNTIL JANUARY
  6. LAMICTAL [Concomitant]
     Active Substance: LAMOTRIGINE
     Dosage: LAMICTAL 175
  7. VALPROATE SODIUM [Concomitant]
     Active Substance: VALPROATE SODIUM
     Indication: Epilepsy
     Dosage: VALPROIC ACID 1000
  8. PHENOBARBITAL [Concomitant]
     Active Substance: PHENOBARBITAL
     Indication: Epilepsy
     Dosage: PHENOBARBITAL 25, 100 UNTIL JANUARY
  9. CIPRALEX [Concomitant]
     Active Substance: ESCITALOPRAM OXALATE
     Indication: Product used for unknown indication
     Dosage: 20 MILLIGRAM DAILY; ESCITALOPRAM 20 MG, 1 TABLET DAILY
  10. TIROSINT [Concomitant]
     Active Substance: LEVOTHYROXINE SODIUM
     Indication: Product used for unknown indication
     Dosage: 1 DOSAGE FORMS DAILY; LEVOTIROXINE 50, 1 TABLET DAILY

REACTIONS (1)
  - Diplopia [Unknown]
